FAERS Safety Report 7165353-2 (Version None)
Quarter: 2010Q4

REPORT INFORMATION
  Report Type: 
  Country: None (occurrence: None)
  Receive Date: 20101215
  Receipt Date: 20100105
  Transmission Date: 20110411
  Serious: No
  Sender: FDA-Public Use
  Company Number: US-AMGEN-KDL383779

PATIENT

DRUGS (6)
  1. ENBREL [Suspect]
     Indication: PRODUCT USED FOR UNKNOWN INDICATION
     Dosage: 50 MG, QWK
     Route: 058
  2. LEVOTHYROXINE SODIUM [Concomitant]
     Dosage: 100 A?G, UNK
  3. METOPROLOL [Concomitant]
     Dosage: 100 MG, UNK
  4. UNSPECIFIED MEDICATION [Concomitant]
  5. CALCIUM WITH VITAMIN D [Concomitant]
  6. TRIAMTERENE AND HYDROCHLOROTHIAZIDE [Concomitant]

REACTIONS (1)
  - INFLUENZA LIKE ILLNESS [None]
